FAERS Safety Report 21391067 (Version 1)
Quarter: 2022Q3

REPORT INFORMATION
  Report Type: Spontaneous
  Country: None (occurrence: AT)
  Receive Date: 20220929
  Receipt Date: 20220929
  Transmission Date: 20221027
  Serious: Yes (Other)
  Sender: FDA-Public Use
  Company Number: AT-Nova Laboratories Limited-2133285

PATIENT
  Sex: Male

DRUGS (17)
  1. PURIXAN [Suspect]
     Active Substance: MERCAPTOPURINE
     Indication: Acute lymphocytic leukaemia
     Dates: start: 20170425, end: 20170516
  2. PONATINIB [Suspect]
     Active Substance: PONATINIB
     Dates: start: 20161013, end: 20170622
  3. CARVEDILOL [Concomitant]
     Active Substance: CARVEDILOL
  4. LISINOPRIL [Concomitant]
     Active Substance: LISINOPRIL
  5. MERCAPTOPURINE [Suspect]
     Active Substance: MERCAPTOPURINE
     Dates: start: 20170517, end: 20170619
  6. METHOTREXATE [Suspect]
     Active Substance: METHOTREXATE
     Dates: start: 20170425, end: 20170516
  7. METHOTREXATE [Suspect]
     Active Substance: METHOTREXATE
     Dates: start: 20170517, end: 20170618
  8. CYTARABINE [Suspect]
     Active Substance: CYTARABINE
     Dates: start: 20170425, end: 20170516
  9. CYTARABINE [Suspect]
     Active Substance: CYTARABINE
     Dates: start: 20170517, end: 20170618
  10. VINCRISTINE SULFATE [Suspect]
     Active Substance: VINCRISTINE SULFATE
     Dates: start: 20171002
  11. VORICONAZOLE [Suspect]
     Active Substance: VORICONAZOLE
  12. CYCLOPHOSPHAMIDE [Suspect]
     Active Substance: CYCLOPHOSPHAMIDE
     Dates: start: 20170425, end: 20170516
  13. CYCLOPHOSPHAMIDE [Suspect]
     Active Substance: CYCLOPHOSPHAMIDE
     Dates: start: 20170517, end: 20170618
  14. PEGASPARGASE [Suspect]
     Active Substance: PEGASPARGASE
     Dates: start: 20170425, end: 20170516
  15. DEXAMETHASONE [Suspect]
     Active Substance: DEXAMETHASONE
     Dates: start: 20170517, end: 20170618
  16. VINCRISTINE [Suspect]
     Active Substance: VINCRISTINE
     Dates: start: 20170425, end: 20170516
  17. PREDNISOLONE [Suspect]
     Active Substance: PREDNISOLONE
     Dates: start: 20170425, end: 20170516

REACTIONS (14)
  - Hepatic steatosis [Recovered/Resolved]
  - Pericardial effusion [Unknown]
  - Gastrointestinal wall thickening [Recovered/Resolved]
  - Cytokine release syndrome [Unknown]
  - Gallbladder oedema [Recovered/Resolved]
  - Bradycardia [Unknown]
  - Abdominal pain [Recovered/Resolved]
  - Pancreatitis [Unknown]
  - Angioedema [Unknown]
  - Anaphylactic reaction [Unknown]
  - Respiratory distress [Unknown]
  - Ascites [Recovered/Resolved]
  - Febrile neutropenia [Unknown]
  - Staphylococcal sepsis [Unknown]

NARRATIVE: CASE EVENT DATE: 20170606
